FAERS Safety Report 10239780 (Version 2)
Quarter: 2014Q2

REPORT INFORMATION
  Report Type: Not Available
  Country: None (occurrence: US)
  Receive Date: 20140616
  Receipt Date: 20140627
  Transmission Date: 20141212
  Serious: Yes (Death)
  Sender: FDA-Public Use
  Company Number: US-ONYX-2014-1313

PATIENT
  Age: 71 Year
  Sex: Male

DRUGS (1)
  1. KYPROLIS [Suspect]
     Indication: PLASMA CELL MYELOMA
     Route: 042
     Dates: start: 201404, end: 201405

REACTIONS (6)
  - Death [Fatal]
  - Asthenia [Unknown]
  - Pneumonia [Unknown]
  - Cardiac failure congestive [Unknown]
  - Platelet count decreased [Unknown]
  - Haemoglobin decreased [Unknown]
